FAERS Safety Report 9798710 (Version 2)
Quarter: 2015Q3

REPORT INFORMATION
  Report Type: Spontaneous
  Country: US (occurrence: US)
  Receive Date: 20140106
  Receipt Date: 20150806
  Transmission Date: 20151125
  Serious: No
  Sender: FDA-Public Use
  Company Number: US-GILEAD-2010-0029894

PATIENT
  Age: 26 Year
  Sex: Female
  Weight: 72.57 kg

DRUGS (11)
  1. AMITRIPTYLINE [Concomitant]
     Active Substance: AMITRIPTYLINE
  2. DIGOXIN. [Concomitant]
     Active Substance: DIGOXIN
  3. MIDORINE [Concomitant]
     Active Substance: MIDODRINE
  4. DOCQLACE [Concomitant]
     Active Substance: DOCUSATE SODIUM
  5. LETAIRIS [Suspect]
     Active Substance: AMBRISENTAN
     Indication: PULMONARY ARTERIAL HYPERTENSION
     Route: 048
     Dates: start: 20100130
  6. REVATIO [Concomitant]
     Active Substance: SILDENAFIL CITRATE
  7. AMIODARONE [Concomitant]
     Active Substance: AMIODARONE
  8. LASIX [Concomitant]
     Active Substance: FUROSEMIDE
  9. LEVETIRACETAM. [Concomitant]
     Active Substance: LEVETIRACETAM
  10. FERROUS SULFATE [Concomitant]
     Active Substance: FERROUS SULFATE\FERROUS SULFATE, DRIED
  11. TOPIRAMATE. [Concomitant]
     Active Substance: TOPIRAMATE

REACTIONS (1)
  - Epistaxis [Unknown]
